FAERS Safety Report 8928879 (Version 1)
Quarter: 2012Q4

REPORT INFORMATION
  Report Type: 
  Country: US (occurrence: US)
  Receive Date: 20121128
  Receipt Date: 20121128
  Transmission Date: 20130627
  Serious: Yes (Hospitalization)
  Sender: FDA-Public Use
  Company Number: US-AMGEN-USASP2012076046

PATIENT
  Age: 65 Year
  Sex: Male

DRUGS (2)
  1. EPOGEN [Suspect]
     Indication: RENAL FAILURE CHRONIC
     Dosage: UNK
  2. ARANESP [Suspect]
     Dosage: UNK

REACTIONS (2)
  - Hyperkalaemia [Recovered/Resolved]
  - Incorrect storage of drug [Unknown]
